FAERS Safety Report 19120176 (Version 5)
Quarter: 2023Q2

REPORT INFORMATION
  Report Type: Spontaneous
  Country: US (occurrence: None)
  Receive Date: 20210412
  Receipt Date: 20230518
  Transmission Date: 20230721
  Serious: Yes (Other)
  Sender: FDA-Public Use
  Company Number: US-ROCHE-2807579

PATIENT
  Sex: Male

DRUGS (1)
  1. OCREVUS [Suspect]
     Active Substance: OCRELIZUMAB
     Indication: Multiple sclerosis
     Dosage: ADDITIONAL TREATMENT DATE: /DEC/2017, LAST DOSE WAS ON: /JAN/2018
     Route: 042
     Dates: start: 20170823

REACTIONS (1)
  - Relapsing multiple sclerosis [Unknown]
